FAERS Safety Report 6550951-7 (Version None)
Quarter: 2010Q1

REPORT INFORMATION
  Report Type: 
  Country: None (occurrence: None)
  Receive Date: 20100125
  Receipt Date: 20100111
  Transmission Date: 20100710
  Serious: Yes (Other)
  Sender: FDA-Public Use
  Company Number: FR-PFIZER INC-2010003476

PATIENT
  Age: 54 Year
  Sex: Female

DRUGS (11)
  1. NEURONTIN [Suspect]
     Indication: PAIN
     Dosage: 200 MG, 1X/DAY
     Route: 048
     Dates: start: 20090101, end: 20090101
  2. RIVOTRIL [Suspect]
     Indication: PAIN
     Dosage: 1 MG, 1X/DAY (10 DROPS)
     Route: 048
     Dates: start: 20090201, end: 20090201
  3. LEXOMIL [Suspect]
     Dosage: UNK
     Route: 048
     Dates: start: 20090101
  4. COLTRAMYL [Suspect]
     Dosage: UNK
     Route: 048
     Dates: start: 20090101
  5. TOPALGIC [Suspect]
     Indication: PAIN
     Dosage: 150 MG, 2X/DAY
     Route: 048
     Dates: start: 20090101, end: 20090101
  6. NEXIUM [Suspect]
     Dosage: 40 MG, 1X/DAY
     Route: 048
     Dates: start: 20090101, end: 20090101
  7. ACTISKENAN [Suspect]
     Indication: PAIN
     Dosage: 10 MG, UNK
     Dates: start: 20090101, end: 20090101
  8. NOCTRAN 10 [Suspect]
     Dosage: 20 MG, 1X/DAY
     Route: 048
     Dates: start: 20090101, end: 20090101
  9. BI-PROFENID [Concomitant]
     Dosage: 150 MG, 1X/DAY
  10. CELESTAMINE TAB [Concomitant]
     Dosage: UNK
  11. UTROGESTAN [Concomitant]
     Dosage: 100 MG, 1X/DAY

REACTIONS (2)
  - BALANCE DISORDER [None]
  - FALL [None]
